FAERS Safety Report 24009489 (Version 1)
Quarter: 2024Q2

REPORT INFORMATION
  Report Type: Spontaneous
  Country: IN (occurrence: IN)
  Receive Date: 20240625
  Receipt Date: 20240625
  Transmission Date: 20240716
  Serious: Yes (Hospitalization, Other)
  Sender: FDA-Public Use
  Company Number: IN-EPICPHARMA-IN-2024EPCLIT00743

PATIENT
  Age: 24 Year
  Sex: Female

DRUGS (1)
  1. PHENYTOIN [Suspect]
     Active Substance: PHENYTOIN
     Indication: Seizure
     Dosage: EXCESS OF THE PRESCRIBED DOSE
     Route: 065

REACTIONS (5)
  - Seizure [Unknown]
  - Paradoxical drug reaction [Unknown]
  - Toxicity to various agents [Unknown]
  - Overdose [Unknown]
  - Intentional product misuse [Unknown]
